FAERS Safety Report 7215529-0 (Version None)
Quarter: 2011Q1

REPORT INFORMATION
  Report Type: 
  Country: None (occurrence: None)
  Receive Date: 20110107
  Receipt Date: 20110104
  Transmission Date: 20110831
  Serious: Yes (Death)
  Sender: FDA-Public Use
  Company Number: NL-ROCHE-751327

PATIENT
  Sex: Female

DRUGS (9)
  1. HCT [Concomitant]
     Dates: end: 20101221
  2. NIFEDIPINE [Concomitant]
     Dates: end: 20101221
  3. OMEPRAZOLE [Concomitant]
     Dates: start: 20100915, end: 20101221
  4. DICLOFENAC [Concomitant]
     Dates: start: 20100915, end: 20101221
  5. LOPERAMIDE [Concomitant]
     Dates: start: 20101213, end: 20101221
  6. IRBESARTAN [Concomitant]
     Dates: end: 20101221
  7. TRASTUZUMAB [Suspect]
     Dosage: DOSE: 600, LAST DOSE PRIOR TO SAE 8 DECEMBER 2010, FREQUENCY: UNKNOWN, THERAPY DURATION: 3 WEEKS
     Route: 042
     Dates: start: 20100826
  8. PACLITAXEL [Suspect]
     Dosage: DOSE: 198, LAST DOSE PRIOR TO SAE 15 DECEMBER 2010, FREQUENCY: UNKNOWN, THERAPY DURATION: 3 WEEKS
     Route: 042
     Dates: start: 20101208
  9. BEVACIZUMAB [Suspect]
     Dosage: DOSE: 1500, LAST DOSE PRIOR TO SAE 8 DECEMBER 2010, FREQUENCY: UNKNOWN,  THERAPY DURATION: 3 WEEKS
     Route: 042
     Dates: start: 20100827

REACTIONS (3)
  - SHOCK [None]
  - SEPSIS [None]
  - LARGE INTESTINE PERFORATION [None]
